FAERS Safety Report 9814837 (Version 2)
Quarter: 2014Q1

REPORT INFORMATION
  Report Type: Spontaneous
  Country: US (occurrence: US)
  Receive Date: 20140113
  Receipt Date: 20140227
  Transmission Date: 20141002
  Serious: Yes (Hospitalization)
  Sender: FDA-Public Use
  Company Number: US-GLAXOSMITHKLINE-A1055591A

PATIENT
  Age: 66 Year
  Sex: Female

DRUGS (4)
  1. TYKERB [Suspect]
     Indication: BREAST CANCER METASTATIC
     Dosage: 750MG PER DAY
     Route: 048
     Dates: start: 2012
  2. NEURONTIN [Concomitant]
  3. BACLOFEN [Concomitant]
  4. HERCEPTIN [Concomitant]
     Indication: BREAST CANCER METASTATIC
     Route: 065
     Dates: start: 2012

REACTIONS (4)
  - Intention tremor [Recovering/Resolving]
  - Muscle spasticity [Recovering/Resolving]
  - Asthenia [Recovering/Resolving]
  - Dizziness [Recovering/Resolving]
